FAERS Safety Report 19554314 (Version 1)
Quarter: 2021Q3

REPORT INFORMATION
  Report Type: Spontaneous
  Country: US (occurrence: US)
  Receive Date: 20210715
  Receipt Date: 20210715
  Transmission Date: 20211014
  Serious: No
  Sender: FDA-Public Use
  Company Number: US-TEVA-2021-US-1931678

PATIENT

DRUGS (1)
  1. OXYBUTYNIN. [Suspect]
     Active Substance: OXYBUTYNIN CHLORIDE
     Dosage: 5 MILLIGRAM DAILY; AT NIGHT
     Route: 065

REACTIONS (2)
  - Drug ineffective [Unknown]
  - Nocturia [Unknown]
